FAERS Safety Report 6613142-7 (Version None)
Quarter: 2010Q1

REPORT INFORMATION
  Report Type: 
  Country: None (occurrence: None)
  Receive Date: 20100225
  Receipt Date: 20100211
  Transmission Date: 20100710
  Serious: Yes (Other)
  Sender: FDA-Public Use
  Company Number: DSA_41748_2009

PATIENT
  Sex: Male

DRUGS (12)
  1. XENAZINE [Suspect]
     Indication: TOURETTE'S DISORDER
     Dosage: (62.5 MG, ORAL), (25 MG TID, ORAL), (DF ORAL), (12.5 MG TID ORAL)
     Route: 048
     Dates: start: 20090905, end: 20090101
  2. XENAZINE [Suspect]
     Indication: TOURETTE'S DISORDER
     Dosage: (62.5 MG, ORAL), (25 MG TID, ORAL), (DF ORAL), (12.5 MG TID ORAL)
     Route: 048
     Dates: start: 20090930, end: 20090101
  3. XENAZINE [Suspect]
     Indication: TOURETTE'S DISORDER
     Dosage: (62.5 MG, ORAL), (25 MG TID, ORAL), (DF ORAL), (12.5 MG TID ORAL)
     Route: 048
     Dates: start: 20090101, end: 20091201
  4. XENAZINE [Suspect]
     Indication: TOURETTE'S DISORDER
     Dosage: (62.5 MG, ORAL), (25 MG TID, ORAL), (DF ORAL), (12.5 MG TID ORAL)
     Route: 048
     Dates: start: 20100205
  5. WELLBUTRIN [Concomitant]
  6. LIPITOR [Concomitant]
  7. HYZAAR /01284801/ [Concomitant]
  8. KAPIDEX [Concomitant]
  9. FISH OIL [Concomitant]
  10. BUPROPION HCL [Concomitant]
  11. BABY ASPIRIN [Concomitant]
  12. MULTIVITAMIN /00831701/ [Concomitant]

REACTIONS (7)
  - BRADYPHRENIA [None]
  - COGNITIVE DISORDER [None]
  - DEPRESSED MOOD [None]
  - DISORIENTATION [None]
  - FATIGUE [None]
  - SEDATION [None]
  - SUICIDAL IDEATION [None]
